FAERS Safety Report 5676588-X (Version None)
Quarter: 2008Q1

REPORT INFORMATION
  Report Type: 
  Country: None (occurrence: None)
  Receive Date: 20080321
  Receipt Date: 20080321
  Transmission Date: 20080703
  Serious: No
  Sender: FDA-Public Use
  Company Number: None

PATIENT
  Sex: Female
  Weight: 70.3075 kg

DRUGS (3)
  1. LORAZEPAM [Suspect]
     Indication: DEPRESSION
     Dosage: 0.5 MG 1 1/2 - 2 AT BEDTIME BY MOUTH
     Route: 048
     Dates: start: 20080317
  2. LORAZEPAM [Suspect]
     Indication: DEPRESSION
     Dosage: 0.5 MG 1 1/2 - 2 AT BEDTIME BY MOUTH
     Route: 048
     Dates: start: 20080318
  3. LORAZEPAM [Suspect]
     Indication: DEPRESSION
     Dosage: 0.5 MG 1 1/2 - 2 AT BEDTIME BY MOUTH
     Route: 048
     Dates: start: 20080319

REACTIONS (2)
  - DRUG EFFECT DECREASED [None]
  - PHARMACEUTICAL PRODUCT COMPLAINT [None]
